FAERS Safety Report 6809188-6 (Version None)
Quarter: 2010Q2

REPORT INFORMATION
  Report Type: 
  Country: None (occurrence: None)
  Receive Date: 20100630
  Receipt Date: 20100622
  Transmission Date: 20101027
  Serious: No
  Sender: FDA-Public Use
  Company Number: US-BIOGENIDEC-2010BI021692

PATIENT
  Age: 24 Year
  Sex: Female

DRUGS (5)
  1. TYSABRI [Suspect]
     Indication: MULTIPLE SCLEROSIS
     Route: 042
     Dates: start: 20090415, end: 20090911
  2. TYSABRI [Suspect]
     Route: 042
     Dates: start: 20091106
  3. BENADRYL [Concomitant]
  4. SINGULAIR [Concomitant]
  5. ZANTAC [Concomitant]

REACTIONS (5)
  - CHILLS [None]
  - PYREXIA [None]
  - SENSORY DISTURBANCE [None]
  - TREMOR [None]
  - URTICARIA [None]
